FAERS Safety Report 7259669-9 (Version None)
Quarter: 2011Q1

REPORT INFORMATION
  Report Type: 
  Country: None (occurrence: None)
  Receive Date: 20110130
  Receipt Date: 20101007
  Transmission Date: 20110831
  Serious: No
  Sender: FDA-Public Use
  Company Number: US-ABBOTT-10P-163-0652454-00

PATIENT
  Sex: Female

DRUGS (2)
  1. HUMIRA [Suspect]
     Indication: CROHN'S DISEASE
     Dates: end: 20100601
  2. PREDNISONE [Concomitant]
     Indication: CROHN'S DISEASE

REACTIONS (4)
  - DRUG INEFFECTIVE [None]
  - LIQUID PRODUCT PHYSICAL ISSUE [None]
  - DIARRHOEA HAEMORRHAGIC [None]
  - ABDOMINAL PAIN [None]
